FAERS Safety Report 8015249-9 (Version None)
Quarter: 2011Q4

REPORT INFORMATION
  Report Type: 
  Country: None (occurrence: None)
  Receive Date: 20111230
  Receipt Date: 20111219
  Transmission Date: 20120403
  Serious: No
  Sender: FDA-Public Use
  Company Number: US-BIOGENIDEC-2011BI048032

PATIENT
  Sex: Female

DRUGS (3)
  1. AVONEX [Suspect]
     Indication: MULTIPLE SCLEROSIS
     Route: 030
     Dates: start: 20040101, end: 20110101
  2. AVONEX [Suspect]
     Route: 030
     Dates: start: 20030101, end: 20040101
  3. AVONEX [Suspect]
     Route: 030
     Dates: start: 20020101, end: 20030101

REACTIONS (12)
  - DERMATITIS ALLERGIC [None]
  - WHITE BLOOD CELL COUNT INCREASED [None]
  - RENAL PAIN [None]
  - REACTION TO DRUG EXCIPIENTS [None]
  - BLOOD CHOLESTEROL INCREASED [None]
  - ALOPECIA [None]
  - INFLUENZA LIKE ILLNESS [None]
  - MUSCLE SPASMS [None]
  - HYPERGAMMAGLOBULINAEMIA BENIGN MONOCLONAL [None]
  - PROTEIN TOTAL INCREASED [None]
  - HEPATOMEGALY [None]
  - ULTRASOUND KIDNEY ABNORMAL [None]
